FAERS Safety Report 13028279 (Version 1)
Quarter: 2016Q4

REPORT INFORMATION
  Report Type: Spontaneous
  Country: US (occurrence: US)
  Receive Date: 20161214
  Receipt Date: 20161214
  Transmission Date: 20170207
  Serious: Yes (Other)
  Sender: FDA-Public Use
  Company Number: US-TEVA-720513USA

PATIENT
  Sex: Female

DRUGS (1)
  1. GABITRIL [Suspect]
     Active Substance: TIAGABINE HYDROCHLORIDE
     Route: 065

REACTIONS (2)
  - General physical health deterioration [Unknown]
  - Pneumonia [Unknown]
